FAERS Safety Report 9200337 (Version 1)
Quarter: 2013Q1

REPORT INFORMATION
  Report Type: Report from Study
  Country: DE (occurrence: DE)
  Receive Date: 20130329
  Receipt Date: 20130329
  Transmission Date: 20140127
  Serious: Yes (Hospitalization)
  Sender: FDA-Public Use
  Company Number: DE-ELI_LILLY_AND_COMPANY-DE200702001130

PATIENT
  Sex: Female
  Weight: 56 kg

DRUGS (3)
  1. GEMCITABINE HYDROCHLORIDE [Suspect]
     Indication: BREAST CANCER
     Dosage: 1540 MG, UNKNOWN
     Route: 042
     Dates: start: 20070131
  2. FORTECORTIN [Concomitant]
     Indication: ANTIEMETIC SUPPORTIVE CARE
     Dosage: 8 MG, UNKNOWN
     Route: 042
     Dates: start: 20070131
  3. ZOFRAN [Concomitant]
     Indication: ANTIEMETIC SUPPORTIVE CARE
     Dosage: 8 MG, UNKNOWN
     Route: 042
     Dates: start: 20070131

REACTIONS (4)
  - Dehydration [Recovered/Resolved]
  - Leukopenia [Recovered/Resolved]
  - Neutropenia [Recovered/Resolved]
  - General physical health deterioration [Recovered/Resolved]
